FAERS Safety Report 13383172 (Version 1)
Quarter: 2017Q1

REPORT INFORMATION
  Report Type: Spontaneous
  Country: FR (occurrence: FR)
  Receive Date: 20170329
  Receipt Date: 20170329
  Transmission Date: 20170429
  Serious: Yes (Death, Hospitalization)
  Sender: FDA-Public Use
  Company Number: FR-ELI_LILLY_AND_COMPANY-FR201703007657

PATIENT
  Age: 74 Year
  Sex: Male

DRUGS (6)
  1. ALIMTA [Suspect]
     Active Substance: PEMETREXED DISODIUM
     Indication: LUNG NEOPLASM MALIGNANT
  2. CARBOPLATINE [Suspect]
     Active Substance: CARBOPLATIN
     Indication: NEUROENDOCRINE CARCINOMA METASTATIC
     Dosage: UNK UNK, UNKNOWN
     Route: 042
     Dates: start: 201412, end: 201412
  3. CARBOPLATINE [Suspect]
     Active Substance: CARBOPLATIN
     Indication: LUNG NEOPLASM MALIGNANT
  4. ALIMTA [Suspect]
     Active Substance: PEMETREXED DISODIUM
     Indication: NEUROENDOCRINE CARCINOMA METASTATIC
     Dosage: UNK UNK, UNKNOWN
     Route: 042
     Dates: start: 201412, end: 201412
  5. ALIMTA [Suspect]
     Active Substance: PEMETREXED DISODIUM
     Indication: NASAL CAVITY CANCER
     Dosage: UNK UNK, UNKNOWN
     Route: 042
     Dates: start: 20150105, end: 20150105
  6. CARBOPLATINE [Suspect]
     Active Substance: CARBOPLATIN
     Indication: NASAL CAVITY CANCER
     Dosage: UNK UNK, UNKNOWN
     Route: 042
     Dates: start: 20150105, end: 20150105

REACTIONS (23)
  - Infection [Fatal]
  - Decreased appetite [Unknown]
  - Off label use [Recovered/Resolved]
  - Rash [Fatal]
  - Inflammation [Fatal]
  - Asthenia [Fatal]
  - Nausea [Fatal]
  - Melaena [Fatal]
  - Malignant neoplasm progression [Fatal]
  - Parakeratosis [Unknown]
  - General physical condition abnormal [Unknown]
  - Confusional state [Unknown]
  - Agitation [Unknown]
  - Hepatic encephalopathy [Unknown]
  - Skin exfoliation [Unknown]
  - Chills [Fatal]
  - Weight decreased [Unknown]
  - Nervous system disorder [Unknown]
  - General physical health deterioration [Unknown]
  - Oesophageal varices haemorrhage [Fatal]
  - Cholestasis [Unknown]
  - Jaundice [Unknown]
  - Drug intolerance [Unknown]

NARRATIVE: CASE EVENT DATE: 201412
